FAERS Safety Report 8208420-4 (Version None)
Quarter: 2012Q1

REPORT INFORMATION
  Report Type: 
  Country: None (occurrence: None)
  Receive Date: 20120314
  Receipt Date: 20120301
  Transmission Date: 20120608
  Serious: Yes (Other)
  Sender: FDA-Public Use
  Company Number: BR-AMGEN-BRASP2012015041

PATIENT
  Age: 59 Year
  Sex: Female
  Weight: 60 kg

DRUGS (12)
  1. CLONIDINE HYDROCHLORIDE [Concomitant]
     Indication: HYPERTENSION
     Dosage: 200 MG, 2X/DAY
  2. ENBREL [Suspect]
     Indication: RHEUMATOID ARTHRITIS
     Dosage: 50 MG, WEEKLY
     Route: 058
     Dates: start: 20080101
  3. ENBREL [Suspect]
     Dosage: UNK, WEEKLY
     Dates: start: 20111101
  4. GLYBURIDE [Concomitant]
     Indication: DIABETES MELLITUS
     Dosage: 5 MG, 1X/DAY
  5. ATENOLOL [Concomitant]
     Indication: HYPERTENSION
     Dosage: 100 MG, 2X/DAY
  6. OMEPRAZOLE [Concomitant]
     Indication: PROPHYLAXIS
     Dosage: 20 MG, 1X/DAY
  7. ACETAMINOPHEN [Concomitant]
     Indication: PAIN IN EXTREMITY
     Dosage: 100 MG, AS NEEDED
  8. METFORMIN [Concomitant]
     Indication: DIABETES MELLITUS
     Dosage: 850 MG, 3X/DAY
  9. ASPIRIN [Concomitant]
     Indication: HYPERTENSION
     Dosage: 200 MG, 2 TABLETS OF 100 MG, ALTERNATE DAY
  10. PREDNISONE [Concomitant]
     Indication: RHEUMATOID ARTHRITIS
     Dosage: 5 MG, 1X/DAY
  11. LOSARTAN POTASSIUM [Concomitant]
     Indication: HYPERTENSION
     Dosage: 50 MG, 2X/DAY
  12. NIFEDIPINE [Concomitant]
     Indication: HYPERTENSION
     Dosage: UNK,1X/DAY

REACTIONS (8)
  - DIABETES MELLITUS [None]
  - APPLICATION SITE DISCOMFORT [None]
  - FATIGUE [None]
  - PAIN [None]
  - HEPATITIS [None]
  - NAUSEA [None]
  - DECREASED APPETITE [None]
  - PAIN IN EXTREMITY [None]
